FAERS Safety Report 4591346-5 (Version None)
Quarter: 2005Q1

REPORT INFORMATION
  Report Type: 
  Country: None (occurrence: None)
  Receive Date: 20050222
  Receipt Date: 20050222
  Transmission Date: 20050727
  Serious: Yes (Life-Threatening, Hospitalization)
  Sender: FDA-Public Use
  Company Number: None

PATIENT
  Age: 66 Year
  Sex: Male
  Weight: 102 kg

DRUGS (1)
  1. RETEVASE [Suspect]
     Indication: ISCHAEMIC STROKE
     Dosage: 10 UNITS X2 INTRAVENOUS
     Route: 042
     Dates: start: 20050219, end: 20050219

REACTIONS (4)
  - CEREBRAL HAEMORRHAGE [None]
  - COMA [None]
  - CONVULSION [None]
  - MENTAL STATUS CHANGES [None]
